FAERS Safety Report 5626232-2 (Version None)
Quarter: 2008Q1

REPORT INFORMATION
  Report Type: 
  Country: None (occurrence: None)
  Receive Date: 20080214
  Receipt Date: 20080207
  Transmission Date: 20080703
  Serious: Yes (Hospitalization)
  Sender: FDA-Public Use
  Company Number: B0506916A

PATIENT
  Age: 61 Year
  Sex: Male

DRUGS (7)
  1. EPZICOM [Suspect]
     Indication: DRUG USE FOR UNKNOWN INDICATION
     Route: 048
     Dates: start: 20080117
  2. REYATAZ [Suspect]
     Indication: DRUG USE FOR UNKNOWN INDICATION
     Route: 048
     Dates: start: 20080117
  3. BAKTAR [Suspect]
     Indication: DRUG USE FOR UNKNOWN INDICATION
     Dosage: 1G PER DAY
     Route: 048
     Dates: start: 20071201
  4. HYSERENIN [Suspect]
     Indication: DRUG USE FOR UNKNOWN INDICATION
     Dosage: 100MG THREE TIMES PER DAY
     Route: 048
     Dates: start: 20080121
  5. RISPERDAL [Suspect]
     Indication: DRUG USE FOR UNKNOWN INDICATION
     Dosage: .5MG TWICE PER DAY
     Route: 048
     Dates: start: 20071228
  6. GASTER D [Suspect]
     Indication: DRUG USE FOR UNKNOWN INDICATION
     Dosage: 20MG PER DAY
     Route: 048
     Dates: start: 20080109, end: 20080127
  7. ZANTAC [Concomitant]
     Indication: DRUG USE FOR UNKNOWN INDICATION
     Dates: start: 20080128

REACTIONS (1)
  - BLOOD ALKALINE PHOSPHATASE INCREASED [None]
